FAERS Safety Report 23563911 (Version 3)
Quarter: 2024Q2

REPORT INFORMATION
  Report Type: Report from Study
  Country: US (occurrence: US)
  Receive Date: 20240226
  Receipt Date: 20240430
  Transmission Date: 20240715
  Serious: Yes (Hospitalization, Other)
  Sender: FDA-Public Use
  Company Number: US-ACADIA PHARMACEUTICALS INC.-ACA-2024-TRF-000509

PATIENT
  Age: 22 Year
  Sex: Female

DRUGS (60)
  1. DAYBUE [Suspect]
     Active Substance: TROFINETIDE
     Indication: Rett syndrome
     Dosage: 50 MILLILITER, BID
  2. DAYBUE [Suspect]
     Active Substance: TROFINETIDE
     Dosage: 15 MILLILITER, BID
  3. DAYBUE [Suspect]
     Active Substance: TROFINETIDE
     Dosage: 20 MILLILITER, BID
  4. DAYBUE [Suspect]
     Active Substance: TROFINETIDE
     Dosage: 25 MILLILITER, BID
  5. DAYBUE [Suspect]
     Active Substance: TROFINETIDE
     Dosage: 30 MILLILITER, BID
  6. DAYBUE [Suspect]
     Active Substance: TROFINETIDE
     Dosage: 35 MILLILITER, BID
  7. DAYBUE [Suspect]
     Active Substance: TROFINETIDE
     Dosage: 40 MILLILITER, BID
  8. NYSTATIN [Concomitant]
     Active Substance: NYSTATIN
     Indication: Fungal skin infection
  9. NYSTATIN [Concomitant]
     Active Substance: NYSTATIN
     Indication: Perineal rash
  10. ZINC OXIDE [Concomitant]
     Active Substance: ZINC OXIDE
     Indication: Skin irritation
     Dosage: APPLY TO GT STOMA TOPICALLY EVERY SHIFT FOR SKIN IRRITATION
     Route: 061
     Dates: start: 20240107
  11. VITAMIN D3 [Concomitant]
     Active Substance: CHOLECALCIFEROL
     Dosage: 0.2 MILLILITER, QD
     Dates: start: 20231101
  12. SODIUM CHLORIDE [Concomitant]
     Active Substance: SODIUM CHLORIDE
     Dosage: 1 VIAL INHALE ORALLY 3 TIMES A DAY FOR RESPIRATORY MAINTENANCE
     Dates: start: 20231101
  13. SENNOSIDES [Concomitant]
     Active Substance: SENNOSIDES
     Indication: Constipation
     Dosage: 8.6 MILLIGRAM, QD
     Dates: start: 20231229
  14. POLYETHYLENE GLYCOL 3350 [Concomitant]
     Active Substance: POLYETHYLENE GLYCOL 3350
     Indication: Constipation
     Dosage: 30 MILLILITER, QD
     Dates: start: 20231101
  15. DEXTROSE\ELECTROLYTES NOS [Concomitant]
     Active Substance: DEXTROSE\ELECTROLYTES NOS
     Dosage: 390 MILLILITER, EVERY 6 HOURS AS NEEDED FOR GI INTOLERANCE
     Dates: start: 20231101
  16. DEXTROSE\ELECTROLYTES NOS [Concomitant]
     Active Substance: DEXTROSE\ELECTROLYTES NOS
     Dosage: 250 MILLILITER, FOR GREATER THAN 3 BM IN 24 HOURS
     Dates: start: 20231101
  17. DEXTROSE\ELECTROLYTES NOS [Concomitant]
     Active Substance: DEXTROSE\ELECTROLYTES NOS
     Dosage: 150 MILLILITER, QD
  18. MONTELUKAST SODIUM [Concomitant]
     Active Substance: MONTELUKAST SODIUM
     Indication: Asthma
     Dosage: 1 TABLET ONE TIME A DAY
     Dates: start: 20231101
  19. METAMUCIL [Concomitant]
     Active Substance: PLANTAGO SEED
     Indication: Constipation
     Dosage: 1 PACKET ONE TIME A DAY, 5.8GM/PACKET
     Dates: start: 20231101
  20. LEVOCARNITINE [Concomitant]
     Active Substance: LEVOCARNITINE
     Indication: Short-chain acyl-coenzyme A dehydrogenase deficiency
     Dosage: 5 MILLILITER, BID
     Dates: start: 20231101
  21. LEVETIRACETAM [Concomitant]
     Active Substance: LEVETIRACETAM
     Indication: Seizure
     Dosage: 5 MILLILITER AS NEEDED FOR SEIZURES. GIVE 5 ML PRN FOR TREMORS LASTING }1 HOUR
     Dates: start: 20231101
  22. LEVETIRACETAM [Concomitant]
     Active Substance: LEVETIRACETAM
     Indication: Tremor
  23. LEVETIRACETAM [Concomitant]
     Active Substance: LEVETIRACETAM
     Indication: Seizure
     Dosage: 16 MILLILITER, IN THE EVENING
     Dates: start: 20231101
  24. LEVETIRACETAM [Concomitant]
     Active Substance: LEVETIRACETAM
     Indication: Seizure
     Dosage: 13 MILLILITER, IN THE MORNING
     Dates: start: 20231101
  25. LEVALBUTEROL HYDROCHLORIDE [Concomitant]
     Active Substance: LEVALBUTEROL HYDROCHLORIDE
     Indication: Wheezing
     Dosage: 1 VIAL (3ML) THREE TIMES A DAY
     Dates: start: 20231101
  26. LAMOTRIGINE [Concomitant]
     Active Substance: LAMOTRIGINE
     Indication: Seizure
     Dosage: 150 MILLIGRAM, TID
     Dates: start: 20231101
  27. LACTOBACILLUS RHAMNOSUS [Concomitant]
     Active Substance: LACTOBACILLUS RHAMNOSUS
     Indication: Constipation
     Dosage: 1 CAPSULE QD
     Dates: start: 20231101
  28. IPRATROPIUM BROMIDE [Concomitant]
     Active Substance: IPRATROPIUM BROMIDE\IPRATROPIUM BROMIDE ANHYDROUS
     Indication: Asthma
     Dosage: 2.5 MILLILITER, TID
     Dates: start: 20231101
  29. IBUPROFEN [Concomitant]
     Active Substance: IBUPROFEN
     Indication: Pain
     Dosage: 12 MILLILITER, EVERY 6 HOURS
     Dates: start: 20231101
  30. IBUPROFEN [Concomitant]
     Active Substance: IBUPROFEN
     Indication: Pyrexia
     Dosage: 12 MILLILITER, 6 HOURS AS NEEDED
     Dates: start: 20231101
  31. FLUTICASONE PROPIONATE [Concomitant]
     Active Substance: FLUTICASONE PROPIONATE
     Indication: Rhinitis allergic
     Dosage: 50 MICROGRAM, QD 1 SPRAY IN EACH NOSTRIL
     Dates: start: 20231101
  32. FLUTICASONE PROPIONATE [Concomitant]
     Active Substance: FLUTICASONE PROPIONATE
     Indication: Nasal congestion
     Dosage: 50 MICROGRAM, EVERY PM PRN
     Dates: start: 20231101
  33. FLUTICASONE PROPIONATE [Concomitant]
     Active Substance: FLUTICASONE PROPIONATE
     Indication: Nasopharyngitis
  34. FLEET GLYCERINE [Concomitant]
     Indication: Constipation
     Dosage: INSERT SUPPOSITORY  RECTALLY AS NEEDED PR PRN FOR NO BM IN 2 DAYS
     Route: 054
     Dates: start: 20231114
  35. DIAZEPAM [Concomitant]
     Active Substance: DIAZEPAM
     Indication: Tremor
     Dosage: 5 MILLIGRAM, 1 TABLET FOR SEIZURES PRN AND FOR TREMORS LASTING }20 MINUTES GIVE W/ APPLE JUICE
     Dates: start: 20231101
  36. DIAZEPAM [Concomitant]
     Active Substance: DIAZEPAM
     Indication: Seizure
  37. DIASTAT [Concomitant]
     Active Substance: DIAZEPAM
     Indication: Seizure
     Dosage: 7.5 MILLIGRAM, PRN FOR CONTINUED SEIZURE ACTIVITY}10 MIN AFTER 2ND DOSE OF DIAZEPAM
     Route: 054
     Dates: start: 20231121
  38. COMPLEAT [Concomitant]
     Dosage: 250 MILLILITER, PRN
     Dates: start: 20231114
  39. COMPLEAT [Concomitant]
     Dosage: 125 MILLILITER
     Dates: start: 20231114
  40. CETIRIZINE HCL [Concomitant]
     Active Substance: CETIRIZINE HYDROCHLORIDE
     Indication: Hypersensitivity
     Dosage: 10 MILLILITER, QD
     Dates: start: 20231101
  41. CALCIUM CARBONATE [Concomitant]
     Active Substance: CALCIUM CARBONATE
     Indication: Dyspepsia
     Dosage: 750 MILLIGRAM, QD
     Dates: start: 20231120
  42. CALCIUM CARBONATE [Concomitant]
     Active Substance: CALCIUM CARBONATE
     Indication: Dyspepsia
     Dosage: 1500 MILLIGRAM, QD
     Dates: start: 20231120
  43. BUDESONIDE [Concomitant]
     Active Substance: BUDESONIDE
     Indication: Asthma
     Dosage: 2 MILLILITER, BID
     Dates: start: 20231101
  44. BUDESONIDE [Concomitant]
     Active Substance: BUDESONIDE
     Indication: Chronic respiratory disease
  45. BACLOFEN [Concomitant]
     Active Substance: BACLOFEN
     Indication: Muscle spasticity
     Dosage: 20 MILLIGRAM, TID
     Dates: start: 20231101
  46. UBIDECARENONE [Concomitant]
     Active Substance: UBIDECARENONE
     Dosage: 2.5 MILLILITER, 4 TIMES A DAY
     Dates: start: 20231101
  47. HYPROMELLOSE, UNSPECIFIED [Concomitant]
     Active Substance: HYPROMELLOSE, UNSPECIFIED
     Indication: Dry eye
     Dosage: 1 DROP IN BOTH EYES TWO TIMES A DAY
     Route: 047
     Dates: start: 20231101
  48. ACETAMINOPHEN [Concomitant]
     Active Substance: ACETAMINOPHEN
     Indication: Pyrexia
     Dosage: 50 MILLIGRAM, 1 TABLET EVERY 4 HOURS
     Dates: start: 20231101
  49. ACETAMINOPHEN [Concomitant]
     Active Substance: ACETAMINOPHEN
     Indication: Pain
  50. ACETAMINOPHEN [Concomitant]
     Active Substance: ACETAMINOPHEN
     Indication: Pyrexia
     Dosage: 500 MILLIGRAM, EVERY 4 HOURS AS NEEDED
     Dates: start: 20231101
  51. AUGMENTIN [Concomitant]
     Active Substance: AMOXICILLIN\CLAVULANATE POTASSIUM
  52. ALBUTEROL [Concomitant]
     Active Substance: ALBUTEROL
     Indication: Nasopharyngitis
  53. PREDNISONE [Concomitant]
     Active Substance: PREDNISONE
  54. MIRALAX [Concomitant]
     Active Substance: POLYETHYLENE GLYCOL 3350
     Dosage: 17 GRAM
  55. BENEFIBER [Concomitant]
     Active Substance: STARCH, WHEAT
     Indication: Constipation
  56. KEPPRA [Concomitant]
     Active Substance: LEVETIRACETAM
     Indication: Seizure
     Dosage: 500 MILLIGRAM
  57. LAMICTAL [Concomitant]
     Active Substance: LAMOTRIGINE
     Indication: Seizure
     Dosage: 150 MILLIGRAM, TID
  58. VALIUM [Concomitant]
     Active Substance: DIAZEPAM
     Indication: Seizure
  59. ERGOCALCIFEROL [Concomitant]
     Active Substance: ERGOCALCIFEROL
  60. SINGULAIR [Concomitant]
     Active Substance: MONTELUKAST SODIUM
     Indication: Rhinitis allergic
     Dosage: 4 MILLIGRAM

REACTIONS (8)
  - Respiratory syncytial virus infection [Not Recovered/Not Resolved]
  - Seizure [Not Recovered/Not Resolved]
  - Underdose [Not Recovered/Not Resolved]
  - Agitation [Not Recovered/Not Resolved]
  - Pruritus [Not Recovered/Not Resolved]
  - Sleep terror [Recovered/Resolved]
  - Sleep terror [Not Recovered/Not Resolved]
  - Dyskinesia [Unknown]

NARRATIVE: CASE EVENT DATE: 20240123
